FAERS Safety Report 7363412-2 (Version None)
Quarter: 2011Q1

REPORT INFORMATION
  Report Type: 
  Country: None (occurrence: None)
  Receive Date: 20110321
  Receipt Date: 20110308
  Transmission Date: 20110831
  Serious: Yes (Other)
  Sender: FDA-Public Use
  Company Number: PHHY2011CA13299

PATIENT
  Sex: Female

DRUGS (9)
  1. ACLASTA [Suspect]
     Dosage: 5 MG, UNK
     Route: 042
     Dates: start: 20100226
  2. ACLASTA [Suspect]
     Indication: OSTEOPOROSIS
     Dosage: 5 MG, UNK
     Route: 042
     Dates: start: 20081105
  3. ZOCOR [Concomitant]
  4. ASPIRIN [Concomitant]
  5. LORAZEPAM [Concomitant]
  6. CALCIUM [Concomitant]
  7. VITAMIN D [Concomitant]
  8. EZETROL [Concomitant]
  9. COVERSYL [Concomitant]

REACTIONS (1)
  - LUNG NEOPLASM MALIGNANT [None]
